FAERS Safety Report 7051270-5 (Version None)
Quarter: 2010Q4

REPORT INFORMATION
  Report Type: 
  Country: None (occurrence: None)
  Receive Date: 20101019
  Receipt Date: 20101015
  Transmission Date: 20110411
  Serious: Yes (Other)
  Sender: FDA-Public Use
  Company Number: US-BRISTOL-MYERS SQUIBB COMPANY-15337025

PATIENT
  Age: 54 Year
  Sex: Female
  Weight: 84 kg

DRUGS (10)
  1. ABILIFY [Suspect]
     Indication: BIPOLAR DISORDER
     Dosage: 25 MG A COUPLE OF YEARS AGO AND DECRESED TO 15MG AND NOW 10MG
  2. PLAQUENIL [Concomitant]
     Dosage: FOR 19YEARS
  3. ZOCOR [Concomitant]
  4. BYSTOLIC [Concomitant]
  5. BENICAR [Concomitant]
  6. ASPIRIN [Concomitant]
  7. FISH OIL [Concomitant]
  8. FIBER LAX [Concomitant]
  9. COENZYME Q10 [Concomitant]
  10. ZYPREXA [Concomitant]
     Indication: BIPOLAR DISORDER

REACTIONS (6)
  - DIABETES MELLITUS [None]
  - FATIGUE [None]
  - INSOMNIA [None]
  - SJOGREN'S SYNDROME [None]
  - TREMOR [None]
  - WEIGHT INCREASED [None]
